FAERS Safety Report 24333765 (Version 1)
Quarter: 2024Q3

REPORT INFORMATION
  Report Type: Spontaneous
  Country: US (occurrence: None)
  Receive Date: 20240917
  Receipt Date: 20240917
  Transmission Date: 20241017
  Serious: Yes (Other)
  Sender: Public
  Company Number: None

PATIENT
  Age: 52 Year
  Sex: Female
  Weight: 70.65 kg

DRUGS (3)
  1. DEVICE [Suspect]
     Active Substance: DEVICE
     Indication: Skin wrinkling
     Dates: start: 20220426, end: 20220628
  2. XEOMIN [Suspect]
     Active Substance: INCOBOTULINUMTOXINA
  3. VITAMINS [Concomitant]
     Active Substance: VITAMINS

REACTIONS (11)
  - Skin texture abnormal [None]
  - Skin discolouration [None]
  - Neck pain [None]
  - Electric shock sensation [None]
  - Facial paralysis [None]
  - Dermatochalasis [None]
  - Skin injury [None]
  - Procedural pain [None]
  - Skin procedural complication [None]
  - Wound [None]
  - Lid sulcus deepened [None]

NARRATIVE: CASE EVENT DATE: 20220426
